FAERS Safety Report 17393020 (Version 1)
Quarter: 2020Q1

REPORT INFORMATION
  Report Type: Spontaneous
  Country: JP (occurrence: JP)
  Receive Date: 20200207
  Receipt Date: 20200207
  Transmission Date: 20200409
  Serious: Yes (Other)
  Sender: FDA-Public Use
  Company Number: JP-TEVA-2020-JP-1183015

PATIENT
  Age: 69 Year
  Sex: Male

DRUGS (2)
  1. DOCETAXEL. [Suspect]
     Active Substance: DOCETAXEL
     Indication: EXTRAMAMMARY PAGET^S DISEASE
     Dosage: 35 MG/M2 DAILY; RECEIVED 6 CYCLES OF FIRST-LINE CHEMOTHERAPY; MONTHLY CYCLE OF DOCETAXEL ON DAY 1
     Route: 065
  2. TS-1 [Concomitant]
     Active Substance: GIMERACIL\OTERACIL\TEGAFUR
     Indication: EXTRAMAMMARY PAGET^S DISEASE
     Dosage: 60 MG/M2 DAILY; RECEIVED 6 CYCLES OF FIRST-LINE CHEMOTHERAPY; MONTHLY CYCLE OF GIMERACIL/OTERACIL/TE
     Route: 065

REACTIONS (1)
  - Drug resistance [Unknown]
